FAERS Safety Report 7529402-1 (Version None)
Quarter: 2011Q2

REPORT INFORMATION
  Report Type: 
  Country: None (occurrence: None)
  Receive Date: 20110607
  Receipt Date: 20110606
  Transmission Date: 20111010
  Serious: Yes (Disabling, Other)
  Sender: FDA-Public Use
  Company Number: US-PFIZER INC-2011122228

PATIENT
  Sex: Male
  Weight: 56.7 kg

DRUGS (2)
  1. NARDIL [Suspect]
     Indication: DEPRESSION
     Dosage: 15 MG, DAILY
     Route: 048
     Dates: start: 20110503
  2. NARDIL [Suspect]
     Dosage: 60 MG, DAILY
     Route: 048
     Dates: start: 20110501

REACTIONS (7)
  - FATIGUE [None]
  - DEAFNESS [None]
  - COORDINATION ABNORMAL [None]
  - DIZZINESS [None]
  - SEDATION [None]
  - BLINDNESS [None]
  - LOSS OF CONSCIOUSNESS [None]
